FAERS Safety Report 12098378 (Version 3)
Quarter: 2016Q3

REPORT INFORMATION
  Report Type: Report from Study
  Country: US (occurrence: US)
  Receive Date: 20160222
  Receipt Date: 20160804
  Transmission Date: 20161109
  Serious: Yes (Hospitalization, Other)
  Sender: FDA-Public Use
  Company Number: US-CELGENEUS-USA-2016023763

PATIENT
  Age: 88 Year
  Sex: Female
  Weight: 69.1 kg

DRUGS (21)
  1. BUMETANIDE. [Concomitant]
     Active Substance: BUMETANIDE
     Route: 048
     Dates: start: 20151022
  2. SENNA-DOCUSATE [Concomitant]
     Indication: CONSTIPATION
     Dosage: 8.6-50MG
     Route: 048
     Dates: start: 20151021
  3. POMALYST [Suspect]
     Active Substance: POMALIDOMIDE
     Indication: PLASMA CELL MYELOMA
     Route: 048
     Dates: start: 20150130, end: 20150313
  4. POTASSIUM CHLORIDE. [Concomitant]
     Active Substance: POTASSIUM CHLORIDE
     Indication: HYPOKALAEMIA
     Route: 048
     Dates: start: 20151020, end: 20151021
  5. SPIRONOLACTONE. [Concomitant]
     Active Substance: SPIRONOLACTONE
     Indication: POLYURIA
     Dosage: 10 MILLIGRAM
     Route: 048
     Dates: start: 20151019, end: 20151021
  6. POMALYST [Suspect]
     Active Substance: POMALIDOMIDE
     Route: 048
     Dates: start: 20150623, end: 20150916
  7. BUMETANIDE. [Concomitant]
     Active Substance: BUMETANIDE
     Indication: POLYURIA
     Route: 041
     Dates: start: 20151019
  8. SPIRONOLACTONE. [Concomitant]
     Active Substance: SPIRONOLACTONE
     Dosage: 325 MILLIGRAM
     Route: 048
     Dates: start: 20151020, end: 20151021
  9. CALCITRIOL. [Concomitant]
     Active Substance: CALCITRIOL
     Indication: VITAMIN SUPPLEMENTATION
     Route: 048
     Dates: start: 20151019, end: 20151021
  10. POMALYST [Suspect]
     Active Substance: POMALIDOMIDE
     Route: 048
     Dates: start: 20150316, end: 20160320
  11. POMALYST [Suspect]
     Active Substance: POMALIDOMIDE
     Route: 048
     Dates: start: 20150518, end: 20150614
  12. SODIUM POLYSTYRENE [Concomitant]
     Active Substance: SODIUM POLYSTYRENE SULFONATE
     Indication: HYPERKALAEMIA
     Dosage: 30 GRAM
     Route: 048
     Dates: start: 20151022
  13. BUMETANIDE. [Concomitant]
     Active Substance: BUMETANIDE
     Route: 041
     Dates: start: 20151019, end: 20151021
  14. ASPIRIN. [Concomitant]
     Active Substance: ASPIRIN
     Indication: ANTICOAGULANT THERAPY
     Dosage: 80 MILLIGRAM
     Route: 048
     Dates: start: 20151019, end: 20151022
  15. METOPROLOL. [Concomitant]
     Active Substance: METOPROLOL
     Indication: HYPERTENSION
     Route: 048
     Dates: start: 20151019, end: 20151022
  16. PANTOPRAZOLE [Concomitant]
     Active Substance: PANTOPRAZOLE SODIUM
     Indication: GASTROINTESTINAL ULCER
     Route: 048
     Dates: start: 20151019, end: 20151022
  17. POTASSIUM CHLORIDE. [Concomitant]
     Active Substance: POTASSIUM CHLORIDE
     Route: 048
     Dates: start: 20151021
  18. APIXABAN [Concomitant]
     Active Substance: APIXABAN
     Indication: ANTICOAGULANT THERAPY
     Dosage: 50 MILLIGRAM
     Route: 041
     Dates: start: 20151019, end: 20151022
  19. POMALYST [Suspect]
     Active Substance: POMALIDOMIDE
     Route: 048
     Dates: start: 20150403, end: 20150430
  20. POMALYST [Suspect]
     Active Substance: POMALIDOMIDE
     Route: 048
     Dates: start: 20151209, end: 20160204
  21. ACETAZOLAMIDE. [Concomitant]
     Active Substance: ACETAZOLAMIDE
     Indication: POLYURIA
     Dosage: .25 MICROGRAM
     Route: 041
     Dates: start: 20151020

REACTIONS (4)
  - Cardiac failure congestive [Recovered/Resolved]
  - Pulmonary hypertension [Recovered/Resolved]
  - Pulmonary embolism [Recovered/Resolved]
  - Deep vein thrombosis [Unknown]

NARRATIVE: CASE EVENT DATE: 20150928
